FAERS Safety Report 7531546-5 (Version None)
Quarter: 2011Q2

REPORT INFORMATION
  Report Type: 
  Country: None (occurrence: None)
  Receive Date: 20110608
  Receipt Date: 20110601
  Transmission Date: 20111010
  Serious: Yes (Hospitalization, Other)
  Sender: FDA-Public Use
  Company Number: IT-ROXANE LABORATORIES, INC.-2011-RO-00756RO

PATIENT
  Age: 70 Year
  Sex: Female

DRUGS (4)
  1. MANIDIPINE [Concomitant]
     Indication: HYPERTENSION
  2. ANASTROZOLE [Suspect]
     Indication: BREAST CANCER
  3. ANASTROZOLE [Suspect]
     Indication: ANTIOESTROGEN THERAPY
     Dosage: 1 MG
     Dates: start: 20080801, end: 20090101
  4. BISOPROLOL FUMARATE [Concomitant]
     Indication: HYPERTENSION

REACTIONS (2)
  - HEPATITIS [None]
  - ANTINUCLEAR ANTIBODY POSITIVE [None]
